FAERS Safety Report 7804827-5 (Version None)
Quarter: 2011Q4

REPORT INFORMATION
  Report Type: 
  Country: None (occurrence: None)
  Receive Date: 20111010
  Receipt Date: 20111003
  Transmission Date: 20120403
  Serious: Yes (Other)
  Sender: FDA-Public Use
  Company Number: US-JNJFOC-20111002121

PATIENT
  Sex: Female
  Weight: 84.37 kg

DRUGS (9)
  1. NUCYNTA ER [Suspect]
     Indication: PAIN
     Route: 048
     Dates: start: 20110913, end: 20110930
  2. ADDERALL XR 10 [Concomitant]
     Route: 048
  3. TYLENOL-500 [Concomitant]
     Indication: PAIN
     Route: 048
  4. SAVELLA [Concomitant]
     Route: 065
  5. LACTULOSE [Concomitant]
     Route: 048
  6. COLACE [Concomitant]
     Route: 048
  7. NEURONTIN [Concomitant]
     Route: 048
  8. OXYCODONE HCL [Concomitant]
     Indication: PAIN
     Route: 048
  9. KLONOPIN [Concomitant]
     Route: 048

REACTIONS (3)
  - FALL [None]
  - AGITATION [None]
  - WITHDRAWAL SYNDROME [None]
